FAERS Safety Report 8762619 (Version 1)
Quarter: 2012Q4

REPORT INFORMATION
  Report Type: 
  Country: US (occurrence: US)
  Receive Date: 20120831
  Receipt Date: 20120831
  Transmission Date: 20130627
  Serious: No
  Sender: FDA-Public Use
  Company Number: US-TEVA-355886USA

PATIENT
  Sex: Female
  Weight: 61.74 kg

DRUGS (6)
  1. NUVIGIL [Suspect]
     Indication: MULTIPLE SCLEROSIS
     Dates: start: 2002
  2. GABAPENTIN [Concomitant]
     Indication: RESTLESS LEGS SYNDROME
     Dosage: 300 Milligram Daily;
  3. BUPROPION [Concomitant]
     Indication: DEPRESSION
     Dosage: 150 Milligram Daily;
  4. CLONAZEPAM [Concomitant]
  5. CITALOPRAM HYDROBROMIDE [Concomitant]
     Indication: DEPRESSION
  6. VICODIN [Concomitant]
     Indication: BACK PAIN

REACTIONS (2)
  - Drug ineffective [Unknown]
  - Off label use [Unknown]
